FAERS Safety Report 21341158 (Version 1)
Quarter: 2022Q3

REPORT INFORMATION
  Report Type: Spontaneous
  Country: NL (occurrence: NL)
  Receive Date: 20220916
  Receipt Date: 20220916
  Transmission Date: 20221027
  Serious: Yes (Hospitalization)
  Sender: FDA-Public Use
  Company Number: None

PATIENT
  Sex: Male
  Weight: 85 kg

DRUGS (1)
  1. SOLIFENACIN [Suspect]
     Active Substance: SOLIFENACIN
     Indication: Bladder disorder
     Dosage: 1 DOSAGE FORMS DAILY; 1X DAILY FOR 30 DAYS , BRAND NAME NOT SPECIFIED , FORM STRENGTH : 5 MG
     Dates: start: 20220825, end: 20220825

REACTIONS (7)
  - Confusional state [Recovered/Resolved]
  - Vomiting [Recovered/Resolved]
  - Hyperhidrosis [Recovered/Resolved]
  - Dizziness [Recovered/Resolved]
  - Loss of consciousness [Recovered/Resolved]
  - Near death experience [Recovered/Resolved]
  - Blood pressure decreased [Recovered/Resolved]
